FAERS Safety Report 12257295 (Version 2)
Quarter: 2016Q2

REPORT INFORMATION
  Report Type: Spontaneous
  Country: US (occurrence: US)
  Receive Date: 20160412
  Receipt Date: 20160504
  Transmission Date: 20160815
  Serious: No
  Sender: FDA-Public Use
  Company Number: US-BAYER-2016-068400

PATIENT
  Sex: Female

DRUGS (4)
  1. BAYER GENUINE ASPIRIN [Suspect]
     Active Substance: ASPIRIN
     Indication: OROPHARYNGEAL PAIN
     Dosage: 1 DF, PRN UNDER THE AGE OF 12
     Route: 048
  2. ALEVE [Suspect]
     Active Substance: NAPROXEN SODIUM
     Indication: ARTHRALGIA
     Dosage: 1 DF, QD
     Route: 048
     Dates: start: 1990
  3. BAYER GENUINE ASPIRIN [Suspect]
     Active Substance: ASPIRIN
     Indication: ARTHRALGIA
     Dosage: 1 DF, QD
     Route: 048
     Dates: start: 1990
  4. ALEVE [Suspect]
     Active Substance: NAPROXEN SODIUM
     Indication: ARTHRALGIA
     Dosage: 2 DF, QD
     Route: 048
     Dates: start: 2008

REACTIONS (2)
  - Product use issue [None]
  - Drug administered to patient of inappropriate age [None]

NARRATIVE: CASE EVENT DATE: 1990
